FAERS Safety Report 6032050-6 (Version None)
Quarter: 2009Q1

REPORT INFORMATION
  Report Type: 
  Country: None (occurrence: None)
  Receive Date: 20090107
  Receipt Date: 20081230
  Transmission Date: 20090719
  Serious: Yes (Hospitalization)
  Sender: FDA-Public Use
  Company Number: 2008-04858

PATIENT
  Age: 61 Year
  Sex: Male
  Weight: 84.9 kg

DRUGS (10)
  1. VELCADE [Suspect]
     Indication: MULTIPLE MYELOMA
     Dosage: 2.6 MG, SUBCUTANEOUS
     Route: 058
     Dates: start: 20081128, end: 20081222
  2. DEXAMETHASONE TAB [Suspect]
     Indication: MULTIPLE MYELOMA
  3. ACYCLOVIR [Concomitant]
  4. ONDANSETRON HCL [Concomitant]
  5. ALLOPURINOL [Concomitant]
  6. AMLODIPINE     (AMLODIPINE  LISINOPRIL (LISINOPRIL) [Concomitant]
  7. LISINOPRIL [Concomitant]
  8. BETAXOLOL [Concomitant]
  9. PAMIDRONIC ACID         (PAMIDRONIC ACID) [Concomitant]
  10. LOPERAMIDE [Concomitant]

REACTIONS (3)
  - ATRIAL FIBRILLATION [None]
  - DIARRHOEA [None]
  - HERPES ZOSTER [None]
